FAERS Safety Report 10750810 (Version 1)
Quarter: 2015Q1

REPORT INFORMATION
  Report Type: Spontaneous
  Country: US (occurrence: None)
  Receive Date: 20150128
  Receipt Date: 20150128
  Transmission Date: 20150721
  Serious: Yes (Hospitalization, Other)
  Sender: FDA-Public Use
  Company Number: LH201500039

PATIENT
  Age: 23 Year
  Sex: Female

DRUGS (3)
  1. MAKENA [Suspect]
     Active Substance: HYDROXYPROGESTERONE CAPROATE
     Indication: PREMATURE DELIVERY
     Route: 030
     Dates: start: 20141204, end: 20141231
  2. MAKENA [Suspect]
     Active Substance: HYDROXYPROGESTERONE CAPROATE
     Indication: OFF LABEL USE
     Route: 030
     Dates: start: 20141204, end: 20141231
  3. PRENATAL VITAMINS (ASCORBIC ACID, CALCIUM PANTOTHENATE, CYANOCOBALAMIN, ERGOCALCIFEROL, NICOTINAMIDE, PYRIDOXINE HYDROCHLORIDE, RETINOL PALMITATE, RIBOFLAVIN, THIAMINE MONONITRATE) [Concomitant]

REACTIONS (6)
  - Premature delivery [None]
  - Off label use [None]
  - Vulvovaginal discomfort [None]
  - Stillbirth [None]
  - Vaginal haemorrhage [None]
  - Premature rupture of membranes [None]

NARRATIVE: CASE EVENT DATE: 20140105
